FAERS Safety Report 15729875 (Version 1)
Quarter: 2018Q4

REPORT INFORMATION
  Report Type: Spontaneous
  Country: US (occurrence: US)
  Receive Date: 20181217
  Receipt Date: 20181217
  Transmission Date: 20190205
  Serious: Yes (Other)
  Sender: FDA-Public Use
  Company Number: US-PFIZER INC-2018516208

PATIENT
  Age: 41 Year
  Sex: Female
  Weight: 49.44 kg

DRUGS (1)
  1. LYRICA [Suspect]
     Active Substance: PREGABALIN
     Indication: FIBROMYALGIA
     Dosage: 150 MG, 2X/DAY
     Route: 048

REACTIONS (7)
  - Intervertebral disc space narrowing [Unknown]
  - Intervertebral disc degeneration [Unknown]
  - Haemorrhage [Unknown]
  - Fatigue [Unknown]
  - Osteoporosis [Unknown]
  - Alpha-1 anti-trypsin abnormal [Unknown]
  - Osteoarthritis [Unknown]

NARRATIVE: CASE EVENT DATE: 2011
